FAERS Safety Report 14572431 (Version 1)
Quarter: 2018Q1

REPORT INFORMATION
  Report Type: Report from Study
  Country: US (occurrence: US)
  Receive Date: 20180226
  Receipt Date: 20180226
  Transmission Date: 20180509
  Serious: Yes (Death, Hospitalization, Other)
  Sender: FDA-Public Use
  Company Number: US-JNJFOC-20180137905

PATIENT
  Age: 71 Year
  Sex: Female
  Weight: 63 kg

DRUGS (15)
  1. VALACYCLOVIR [Concomitant]
     Active Substance: VALACYCLOVIR HYDROCHLORIDE
     Route: 048
     Dates: start: 20160324
  2. COMPAZINE [Concomitant]
     Active Substance: PROCHLORPERAZINE MALEATE
     Indication: NAUSEA
     Dosage: TAKE 1 TAB BY MOUTH EVERY 4-6 HOURS
     Route: 048
     Dates: start: 20170825
  3. IMBRUVICA [Suspect]
     Active Substance: IBRUTINIB
     Indication: CHRONIC LYMPHOCYTIC LEUKAEMIA
     Route: 048
     Dates: start: 20171201
  4. VITAMIN D [Concomitant]
     Active Substance: CHOLECALCIFEROL
     Dosage: 2000 UNIT
     Dates: start: 20141106
  5. ZOFRAN [Concomitant]
     Active Substance: ONDANSETRON HYDROCHLORIDE
     Indication: NAUSEA
     Dosage: TAKE 1 TAB BY MOUTH OR DISSOLVE UNDER TONGUE EVERY 8-10 HOURS
     Route: 048
     Dates: start: 20170825
  6. ALLOPURINOL. [Concomitant]
     Active Substance: ALLOPURINOL
     Route: 048
     Dates: start: 20171211
  7. MAGNESIUM [Concomitant]
     Active Substance: MAGNESIUM
     Route: 048
     Dates: start: 20170828
  8. FERREX 150 FORTE [Concomitant]
     Active Substance: CYANOCOBALAMIN\FOLIC ACID\IRON
     Dosage: 150MG-25MCG-1 MG, 1 CAPSULE DAILY
     Dates: start: 20170922
  9. COENZYME Q10 [Concomitant]
     Active Substance: UBIDECARENONE
     Route: 048
     Dates: start: 20170828
  10. LOSARTAN. [Concomitant]
     Active Substance: LOSARTAN
     Route: 048
     Dates: start: 20160710
  11. ROSUVASTATIN. [Concomitant]
     Active Substance: ROSUVASTATIN
     Dates: start: 20170602
  12. FENOFIBRIC ACID. [Concomitant]
     Active Substance: FENOFIBRIC ACID
     Route: 048
     Dates: start: 20141106
  13. TYLENOL [Concomitant]
     Active Substance: ACETAMINOPHEN
     Indication: PAIN
     Dates: start: 20141106
  14. LEVAQUIN [Concomitant]
     Active Substance: LEVOFLOXACIN
     Route: 048
     Dates: start: 20171201
  15. PREDNISONE. [Concomitant]
     Active Substance: PREDNISONE
     Dates: start: 20171201

REACTIONS (12)
  - Splenic infarction [Unknown]
  - Abdominal pain [Unknown]
  - Dysuria [Unknown]
  - Death [Fatal]
  - Epistaxis [Unknown]
  - Disease progression [Unknown]
  - Ascites [Unknown]
  - Generalised oedema [Unknown]
  - Neutropenia [Unknown]
  - Platelet count decreased [Unknown]
  - Pleural effusion [Unknown]
  - Infection [Unknown]

NARRATIVE: CASE EVENT DATE: 20171211
